FAERS Safety Report 12933189 (Version 2)
Quarter: 2016Q4

REPORT INFORMATION
  Report Type: Spontaneous
  Country: US (occurrence: US)
  Receive Date: 20161110
  Receipt Date: 20161221
  Transmission Date: 20170207
  Serious: Yes (Other)
  Sender: FDA-Public Use
  Company Number: US-EMD SERONO-8117555

PATIENT
  Sex: Female

DRUGS (3)
  1. REBIF [Suspect]
     Active Substance: INTERFERON BETA-1A
     Indication: MULTIPLE SCLEROSIS
     Route: 058
     Dates: end: 201609
  2. REBIF [Suspect]
     Active Substance: INTERFERON BETA-1A
     Route: 058
  3. ALEVE [Concomitant]
     Active Substance: NAPROXEN SODIUM
     Indication: PREMEDICATION

REACTIONS (7)
  - Pain of skin [Recovering/Resolving]
  - Dementia [Not Recovered/Not Resolved]
  - Mixed connective tissue disease [Not Recovered/Not Resolved]
  - Faecaloma [Unknown]
  - Congestive cardiomyopathy [Not Recovered/Not Resolved]
  - Skin mass [Not Recovered/Not Resolved]
  - Headache [Recovering/Resolving]
